FAERS Safety Report 15625480 (Version 3)
Quarter: 2019Q3

REPORT INFORMATION
  Report Type: Report from Study
  Country: DE (occurrence: DE)
  Receive Date: 20181116
  Receipt Date: 20190814
  Transmission Date: 20191004
  Serious: Yes (Life-Threatening, Hospitalization, Other)
  Sender: FDA-Public Use
  Company Number: DE-UCBSA-2018050176

PATIENT
  Sex: Female

DRUGS (11)
  1. DIGITOXIN [Concomitant]
     Active Substance: DIGITOXIN
  2. L-THYROXIN [Concomitant]
     Active Substance: LEVOTHYROXINE SODIUM
  3. TORASEMID [Concomitant]
     Active Substance: TORSEMIDE
  4. PANTOPRAZOL [Concomitant]
     Active Substance: PANTOPRAZOLE SODIUM
  5. ORENCIA [Concomitant]
     Active Substance: ABATACEPT
     Indication: PRODUCT USED FOR UNKNOWN INDICATION
     Dosage: 125 MILLIGRAM
     Dates: start: 201712, end: 201802
  6. CERTOLIZUMAB PEGOL [Suspect]
     Active Substance: CERTOLIZUMAB PEGOL
     Indication: RHEUMATOID ARTHRITIS
     Dosage: 200 MG, EV 2 WEEKS(QOW)
     Route: 058
     Dates: start: 201802, end: 20180410
  7. PREDNISOLON [Concomitant]
     Active Substance: PREDNISOLONE
  8. CANDESARTAN. [Concomitant]
     Active Substance: CANDESARTAN
  9. SIMVAHEXAL [Concomitant]
     Active Substance: SIMVASTATIN
  10. XARELTO [Concomitant]
     Active Substance: RIVAROXABAN
     Indication: PRODUCT USED FOR UNKNOWN INDICATION
     Dosage: UNK
  11. CALCILAC [Concomitant]
     Active Substance: CALCIUM CARBONATE

REACTIONS (1)
  - Invasive ductal breast carcinoma [Not Recovered/Not Resolved]

NARRATIVE: CASE EVENT DATE: 201804
